FAERS Safety Report 23624834 (Version 1)
Quarter: 2024Q1

REPORT INFORMATION
  Report Type: Report from Study
  Country: MY (occurrence: MY)
  Receive Date: 20240313
  Receipt Date: 20240313
  Transmission Date: 20240410
  Serious: Yes (Other)
  Sender: FDA-Public Use
  Company Number: MY-AMGEN-MYSSP2024045669

PATIENT
  Age: 63 Year
  Sex: Male

DRUGS (3)
  1. SOTORASIB [Suspect]
     Active Substance: SOTORASIB
     Indication: Lung adenocarcinoma stage IV
     Dosage: 960 MILLIGRAM, QD
     Route: 065
  2. SOTORASIB [Suspect]
     Active Substance: SOTORASIB
     Indication: K-ras gene mutation
  3. CARBOPLATIN;PEMETREXED [Concomitant]
     Dosage: COMPLETED 4 CYCLES

REACTIONS (1)
  - Non-small cell lung cancer [Unknown]
